FAERS Safety Report 17554253 (Version 3)
Quarter: 2020Q2

REPORT INFORMATION
  Report Type: Report from Study
  Country: US (occurrence: US)
  Receive Date: 20200318
  Receipt Date: 20200609
  Transmission Date: 20200713
  Serious: Yes (Other)
  Sender: FDA-Public Use
  Company Number: US-DOVA PHARMACEUTICALS INC.-DOV-000455

PATIENT
  Age: 63 Year
  Sex: Female
  Weight: 101.13 kg

DRUGS (1)
  1. DOPTELET [Suspect]
     Active Substance: AVATROMBOPAG MALEATE
     Indication: THROMBOCYTOPENIA
     Dosage: 20 MG, QD
     Route: 048
     Dates: start: 201911

REACTIONS (3)
  - Vaginal haemorrhage [Unknown]
  - Urinary tract infection [Unknown]
  - Blood urine present [Unknown]

NARRATIVE: CASE EVENT DATE: 20200124
